FAERS Safety Report 16178391 (Version 2)
Quarter: 2019Q2

REPORT INFORMATION
  Report Type: Spontaneous
  Country: US (occurrence: US)
  Receive Date: 20190410
  Receipt Date: 20190426
  Transmission Date: 20190711
  Serious: Yes (Hospitalization)
  Sender: FDA-Public Use
  Company Number: US-ASTRAZENECA-2019SE52994

PATIENT
  Sex: Female
  Weight: 127 kg

DRUGS (15)
  1. METOPROLOL TARTRATE. [Suspect]
     Active Substance: METOPROLOL TARTRATE
     Indication: BLOOD PRESSURE ABNORMAL
     Route: 048
  2. VITAMIN D2 [Concomitant]
     Active Substance: ERGOCALCIFEROL
     Dosage: 25 DAILY
     Route: 048
  3. POTASSIUM [Concomitant]
     Active Substance: POTASSIUM
     Indication: DIURETIC THERAPY
     Dosage: DAILY
     Route: 048
  4. LEVOTHYROXINE. [Concomitant]
     Active Substance: LEVOTHYROXINE
     Indication: THYROID DISORDER
     Dosage: DAILY
  5. OXYGEN. [Concomitant]
     Active Substance: OXYGEN
     Indication: CHRONIC OBSTRUCTIVE PULMONARY DISEASE
     Dosage: 3.0L CONTINUOUSLY
     Route: 045
  6. LOVASTATIN. [Concomitant]
     Active Substance: LOVASTATIN
     Indication: BLOOD CHOLESTEROL ABNORMAL
     Dosage: AT NIGHT
     Route: 048
  7. WARFARIN [Concomitant]
     Active Substance: WARFARIN
     Indication: ANTICOAGULANT THERAPY
     Dosage: 2.5MG NOT APPLICABLE
     Route: 048
  8. TUDORZA PRESSAIR [Suspect]
     Active Substance: ACLIDINIUM BROMIDE
     Indication: EMPHYSEMA
     Route: 055
  9. TYLENOL [Concomitant]
     Active Substance: ACETAMINOPHEN
     Dosage: AS REQUIRED
     Route: 048
  10. GABAPENTIN. [Concomitant]
     Active Substance: GABAPENTIN
     Indication: SLEEP DISORDER
     Dosage: AS REQUIRED
     Route: 048
  11. TUDORZA PRESSAIR [Suspect]
     Active Substance: ACLIDINIUM BROMIDE
     Indication: CHRONIC OBSTRUCTIVE PULMONARY DISEASE
     Route: 055
  12. FUROSEMIDE. [Concomitant]
     Active Substance: FUROSEMIDE
     Indication: DIURETIC THERAPY
     Route: 048
  13. FISH OIL [Concomitant]
     Active Substance: FISH OIL
     Route: 048
  14. ESENTENA [Concomitant]
     Indication: NEOPLASM MALIGNANT
     Route: 048
  15. AMLODIPINE [Concomitant]
     Active Substance: AMLODIPINE BESYLATE
     Indication: BLOOD PRESSURE ABNORMAL
     Dosage: DAILY
     Route: 048

REACTIONS (8)
  - Nervousness [Unknown]
  - Weight fluctuation [Unknown]
  - Weight decreased [Unknown]
  - Body height decreased [Unknown]
  - Arthritis [Not Recovered/Not Resolved]
  - Eye disorder [Not Recovered/Not Resolved]
  - Intentional device misuse [Unknown]
  - Device issue [Unknown]
